FAERS Safety Report 9924812 (Version 1)
Quarter: 2014Q1

REPORT INFORMATION
  Report Type: Spontaneous
  Country: US (occurrence: None)
  Receive Date: 20140224
  Receipt Date: 20140224
  Transmission Date: 20141002
  Serious: No
  Sender: FDA-Public Use
  Company Number: None

PATIENT
  Age: 47 Year
  Sex: Female
  Weight: 52.16 kg

DRUGS (1)
  1. MIRVASO GEL [Suspect]
     Indication: ROSACEA
     Dosage: 0.5G ONCE DAILY APPLIED TO A SURFACE, USUALLY THE SKIN
     Dates: start: 20130930, end: 20140201

REACTIONS (2)
  - Dermatitis contact [None]
  - Drug hypersensitivity [None]
